FAERS Safety Report 21767626 (Version 1)
Quarter: 2022Q4

REPORT INFORMATION
  Report Type: Spontaneous
  Country: JP (occurrence: JP)
  Receive Date: 20221222
  Receipt Date: 20221222
  Transmission Date: 20230112
  Serious: Yes (Other)
  Sender: FDA-Public Use
  Company Number: JP-Eisai Medical Research-EC-2022-130616

PATIENT
  Sex: Female

DRUGS (3)
  1. LENVIMA [Suspect]
     Active Substance: LENVATINIB
     Indication: Endometrial cancer
     Route: 048
     Dates: start: 202206, end: 2022
  2. LENVIMA [Suspect]
     Active Substance: LENVATINIB
     Dosage: REDUCED DOSE AND FREQUENCY UNKNOWN
     Route: 048
     Dates: start: 2022
  3. KEYTRUDA [Suspect]
     Active Substance: PEMBROLIZUMAB
     Indication: Endometrial cancer
     Route: 041
     Dates: start: 202206, end: 2022

REACTIONS (1)
  - Gastrointestinal perforation [Unknown]

NARRATIVE: CASE EVENT DATE: 20220101
